FAERS Safety Report 11321832 (Version 3)
Quarter: 2015Q4

REPORT INFORMATION
  Report Type: Spontaneous
  Country: US (occurrence: US)
  Receive Date: 20150729
  Receipt Date: 20151222
  Transmission Date: 20160304
  Serious: Yes (Hospitalization)
  Sender: FDA-Public Use
  Company Number: US-PFIZER INC-2015248409

PATIENT
  Age: 82 Year
  Sex: Male

DRUGS (1)
  1. BOSULIF [Suspect]
     Active Substance: BOSUTINIB MONOHYDRATE
     Indication: CHRONIC MYELOID LEUKAEMIA
     Dosage: 300 MG, 1X/DAY
     Route: 048
     Dates: start: 201402, end: 201503

REACTIONS (3)
  - Eye haemorrhage [Unknown]
  - White blood cell count increased [Unknown]
  - Eye disorder [Unknown]

NARRATIVE: CASE EVENT DATE: 20150717
